FAERS Safety Report 18815727 (Version 1)
Quarter: 2021Q1

REPORT INFORMATION
  Report Type: Spontaneous
  Country: US (occurrence: US)
  Receive Date: 20210201
  Receipt Date: 20210201
  Transmission Date: 20210419
  Serious: Yes (Life-Threatening, Hospitalization)
  Sender: FDA-Public Use
  Company Number: None

PATIENT
  Age: 69 Year
  Sex: Male

DRUGS (1)
  1. HYDROCHLOROTHIAZIDE/LOSARTAN (HYDROCHLOROTHIAZIDE 15MG/LOSARTAN POTASS [Suspect]
     Active Substance: HYDROCHLOROTHIAZIDE\LOSARTAN
     Indication: HYPERTENSION
     Dosage: ?          OTHER DOSE:1 TABLET;?
     Route: 048
     Dates: start: 20200918, end: 20201006

REACTIONS (12)
  - Blood sodium decreased [None]
  - Seizure [None]
  - Back pain [None]
  - Metabolic encephalopathy [None]
  - Confusional state [None]
  - Asthenia [None]
  - Dehydration [None]
  - Urine output increased [None]
  - Dizziness [None]
  - Hyponatraemia [None]
  - Constipation [None]
  - Aphasia [None]

NARRATIVE: CASE EVENT DATE: 20201003
